FAERS Safety Report 9591295 (Version 1)
Quarter: 2013Q4

REPORT INFORMATION
  Report Type: Spontaneous
  Country: US (occurrence: US)
  Receive Date: 20131003
  Receipt Date: 20131003
  Transmission Date: 20140711
  Serious: No
  Sender: FDA-Public Use
  Company Number: US-AMGEN-USASP2012080805

PATIENT
  Sex: Female
  Weight: 58.05 kg

DRUGS (8)
  1. ENBREL [Suspect]
     Indication: PRODUCT USED FOR UNKNOWN INDICATION
     Dosage: 50 MG, QWK
     Route: 058
  2. LYRICA [Concomitant]
     Dosage: 100 MG, UNK
  3. FOLIC ACID [Concomitant]
     Dosage: UNK
  4. VITAMIN D3 [Concomitant]
     Dosage: 2000 UNIT, UNK
  5. PROPANOLOL                         /00030001/ [Concomitant]
     Dosage: 10 MG, UNK
  6. ZOMIG [Concomitant]
     Dosage: 5 MG, UNK
  7. TRAMADOL HCL [Concomitant]
     Dosage: 50 MG, UNK
  8. PHENERGAN                          /00033001/ [Concomitant]
     Dosage: 25 MG, UNK

REACTIONS (1)
  - Drug ineffective [Unknown]
